FAERS Safety Report 9857157 (Version 1)
Quarter: 2014Q1

REPORT INFORMATION
  Report Type: Spontaneous
  Country: US (occurrence: US)
  Receive Date: 20140130
  Receipt Date: 20140130
  Transmission Date: 20141002
  Serious: Yes (Other)
  Sender: FDA-Public Use
  Company Number: US-PFIZER INC-2014027502

PATIENT
  Age: 66 Year
  Sex: Female
  Weight: 68.03 kg

DRUGS (1)
  1. LYRICA [Suspect]
     Indication: FRACTURE PAIN
     Dosage: 75 MG, 2X/DAY

REACTIONS (5)
  - Off label use [Unknown]
  - Neoplasm malignant [Unknown]
  - Uterine disorder [Unknown]
  - Liver disorder [Unknown]
  - Bone disorder [Unknown]
